FAERS Safety Report 8399466-4 (Version None)
Quarter: 2012Q2

REPORT INFORMATION
  Report Type: 
  Country: None (occurrence: None)
  Receive Date: 20120531
  Receipt Date: 20120525
  Transmission Date: 20120825
  Serious: No
  Sender: FDA-Public Use
  Company Number: US-PFIZER INC-2012052527

PATIENT
  Sex: Male
  Weight: 86.168 kg

DRUGS (4)
  1. IBUPROFEN (ADVIL) [Suspect]
     Indication: PAIN
  2. ADVAIR DISKUS 100/50 [Concomitant]
     Indication: ASTHMA
     Dosage: UNK
  3. INSULIN [Concomitant]
     Indication: DIABETES MELLITUS
     Dosage: UNK
  4. IBUPROFEN (ADVIL) [Suspect]
     Indication: HEADACHE
     Dosage: UNK, AS NEEDED
     Route: 048
     Dates: end: 20120224

REACTIONS (5)
  - POOR QUALITY DRUG ADMINISTERED [None]
  - CHILLS [None]
  - MALAISE [None]
  - INTERVERTEBRAL DISC PROTRUSION [None]
  - NAUSEA [None]
